FAERS Safety Report 10416468 (Version 1)
Quarter: 2014Q2

REPORT INFORMATION
  Report Type: Spontaneous
  Country: US (occurrence: None)
  Receive Date: 20140609
  Receipt Date: 20140609
  Transmission Date: 20141212
  Serious: Yes (Hospitalization)
  Sender: FDA-Public Use
  Company Number: AUR-APL-2014-05254

PATIENT
  Age: 78 Year
  Sex: Female
  Weight: 81.63 kg

DRUGS (13)
  1. CLOPIDOGREL (CLOPIDOGREL) [Suspect]
     Indication: PRODUCT USED FOR UNKNOWN INDICATION
  2. ELIQUIS (APIXABAN) [Suspect]
     Indication: PRODUCT USED FOR UNKNOWN INDICATION
     Dosage: 10 MG (5 MG,2 IN 1 D)
     Dates: start: 201312, end: 201403
  3. BABY ASPIRIN (ACETYLSALICYLIC ACID) [Suspect]
     Indication: PRODUCT USED FOR UNKNOWN INDICATION
  4. COREG (CARVEDILOL) [Concomitant]
  5. LISINOPRIL [Concomitant]
  6. POTASSIUM CHLORIDE [Concomitant]
  7. LASIX (FUROSEMIDE) [Concomitant]
  8. LEVOXYL (LEVOTHYROXINE SODIUM) [Concomitant]
  9. SIMVASTATIN [Concomitant]
  10. ASPIRIN (ACETYLSALICYLIC ACID) [Concomitant]
  11. CENTRUM SILVER [Concomitant]
  12. VITAMIN C (ASCORBIC ACID) [Concomitant]
  13. CALTRATE+D (LEKOVIT CA) [Concomitant]

REACTIONS (1)
  - Gastrointestinal haemorrhage [None]
